FAERS Safety Report 7369386-2 (Version None)
Quarter: 2011Q1

REPORT INFORMATION
  Report Type: 
  Country: None (occurrence: None)
  Receive Date: 20110321
  Receipt Date: 20110321
  Transmission Date: 20110831
  Serious: No
  Sender: FDA-Public Use
  Company Number: None

PATIENT
  Sex: Male
  Weight: 20.8655 kg

DRUGS (1)
  1. CEFDINIR [Suspect]
     Indication: EAR INFECTION
     Dosage: 5ML -250MG- BID PO
     Route: 048
     Dates: start: 20110316, end: 20110317

REACTIONS (2)
  - PAIN [None]
  - ABASIA [None]
